FAERS Safety Report 14354269 (Version 3)
Quarter: 2018Q4

REPORT INFORMATION
  Report Type: Spontaneous
  Country: FR (occurrence: FR)
  Receive Date: 20180105
  Receipt Date: 20181026
  Transmission Date: 20190204
  Serious: Yes (Other)
  Sender: FDA-Public Use
  Company Number: FR-MERCK KGAA-2038468

PATIENT
  Age: 32 Year
  Sex: Female

DRUGS (1)
  1. EUTHYROX [Suspect]
     Active Substance: LEVOTHYROXINE SODIUM
     Indication: POST PROCEDURAL HYPOTHYROIDISM

REACTIONS (19)
  - Irritability [None]
  - Stress [None]
  - Sleep disorder [None]
  - Blood thyroid stimulating hormone increased [None]
  - Feeling abnormal [None]
  - Fatigue [None]
  - Musculoskeletal stiffness [None]
  - Extrasystoles [None]
  - Somnolence [None]
  - Myalgia [None]
  - Hypotension [None]
  - Maternal exposure during pregnancy [None]
  - Headache [None]
  - Muscle spasms [None]
  - Abdominal pain lower [None]
  - Social avoidant behaviour [None]
  - Insomnia [None]
  - Blood pressure decreased [None]
  - Asthenia [None]

NARRATIVE: CASE EVENT DATE: 2017
